FAERS Safety Report 9039716 (Version 1)
Quarter: 2013Q1

REPORT INFORMATION
  Report Type: Report from Study
  Country: US (occurrence: US)
  Receive Date: 20130130
  Receipt Date: 20130130
  Transmission Date: 20140127
  Serious: No
  Sender: FDA-Public Use
  Company Number: US-ABBOTT-12P-163-0944498-00

PATIENT
  Sex: Female
  Weight: 56.75 kg

DRUGS (8)
  1. HUMIRA 40 MG/0.8 ML PEN [Suspect]
     Indication: CROHN^S DISEASE
  2. HUMIRA 40 MG/0.8 ML PEN [Suspect]
     Dates: start: 201203, end: 201203
  3. HUMIRA 40 MG/0.8 ML PEN [Suspect]
     Dates: start: 201204
  4. AMBIEN [Concomitant]
     Indication: INSOMNIA
  5. LEXAPRO [Concomitant]
     Indication: DEPRESSION
  6. VITAMIN D [Concomitant]
     Indication: VITAMIN SUPPLEMENTATION
  7. LORTAB [Concomitant]
     Indication: ABDOMINAL PAIN
  8. TYLENOL [Concomitant]
     Indication: PAIN

REACTIONS (2)
  - Amenorrhoea [Recovered/Resolved]
  - Menstrual disorder [Not Recovered/Not Resolved]
